FAERS Safety Report 9124369 (Version 1)
Quarter: 2013Q1

REPORT INFORMATION
  Report Type: Spontaneous
  Country: US (occurrence: US)
  Receive Date: 20130116
  Receipt Date: 20130116
  Transmission Date: 20140127
  Serious: No
  Sender: FDA-Public Use
  Company Number: US-PFIZER INC-2013017196

PATIENT
  Age: 61 Year
  Sex: Female
  Weight: 104.31 kg

DRUGS (8)
  1. LYRICA [Suspect]
     Indication: FIBROMYALGIA
     Dosage: 25MG IN MORNING AND 50 MG AT NIGHT ONCE A DAY
     Route: 048
     Dates: start: 2012, end: 2012
  2. LYRICA [Suspect]
     Dosage: 25MG IN MORNING AND 50 MG AT NIGHT ONCE A DAY
  3. ALDACTONE [Concomitant]
     Dosage: UNK, 1X/DAY
  4. ZYMAR [Concomitant]
     Dosage: UNK
  5. OXYCODONE [Concomitant]
     Indication: RHEUMATOID ARTHRITIS
     Dosage: UNK, 2X/DAY
  6. PROTONIX [Concomitant]
     Indication: GASTRIC DISORDER
     Dosage: UNK
  7. KLONOPIN [Concomitant]
     Dosage: UNK, 1X/DAY
  8. ORENCIA [Concomitant]
     Dosage: UNK, MONTHLY
     Route: 042

REACTIONS (1)
  - Pain [Recovered/Resolved]
